FAERS Safety Report 8141544-9 (Version None)
Quarter: 2012Q1

REPORT INFORMATION
  Report Type: 
  Country: None (occurrence: None)
  Receive Date: 20120103
  Receipt Date: 20110825
  Transmission Date: 20120608
  Serious: No
  Sender: FDA-Public Use
  Company Number: AE-2011-001148

PATIENT
  Age: 58 Year
  Sex: Female

DRUGS (4)
  1. PEGASYS [Concomitant]
  2. RIBAVIRIN [Concomitant]
  3. LEVOTHYROXINE SODIUM [Concomitant]
  4. INCIVEK [Suspect]
     Dosage: (3 IN 1 D), ORAL
     Route: 048
     Dates: start: 20110818

REACTIONS (1)
  - RASH GENERALISED [None]
